FAERS Safety Report 20313566 (Version 1)
Quarter: 2022Q1

REPORT INFORMATION
  Report Type: Spontaneous
  Country: US (occurrence: US)
  Receive Date: 20220109
  Receipt Date: 20220109
  Transmission Date: 20220423
  Serious: No
  Sender: FDA-Public Use
  Company Number: US-SANOFI-00914114

PATIENT

DRUGS (1)
  1. DUPIXENT [Suspect]
     Active Substance: DUPILUMAB
     Indication: Eczema
     Dosage: DUPIXENT 300MG ECZEMA

REACTIONS (3)
  - Skin odour abnormal [Unknown]
  - Back pain [Unknown]
  - Parosmia [Unknown]
